FAERS Safety Report 14996285 (Version 1)
Quarter: 2018Q2

REPORT INFORMATION
  Report Type: Spontaneous
  Country: US (occurrence: US)
  Receive Date: 20180522
  Receipt Date: 20180522
  Transmission Date: 20180711
  Serious: Yes (Hospitalization, Disabling, Other)
  Sender: FDA-Public Use
  Company Number: None

PATIENT
  Age: 36 Year
  Sex: Female
  Weight: 65.25 kg

DRUGS (3)
  1. BIRTH CONTROL [Concomitant]
     Active Substance: UNSPECIFIED INGREDIENT
  2. MULTIVITAMIN [Concomitant]
     Active Substance: VITAMINS
  3. BUPIVACAINE\TRIAMCINOLONE. [Suspect]
     Active Substance: BUPIVACAINE\TRIAMCINOLONE
     Indication: BURSITIS
     Dosage: ?          QUANTITY:2 CC;OTHER FREQUENCY:ONE TIME;OTHER ROUTE:INJECTION?
     Dates: start: 20180328, end: 20180328

REACTIONS (29)
  - Throat irritation [None]
  - Decreased appetite [None]
  - Nausea [None]
  - Anxiety [None]
  - Depression [None]
  - Feeling abnormal [None]
  - Euphoric mood [None]
  - Malaise [None]
  - Gastritis [None]
  - Heart rate increased [None]
  - Vision blurred [None]
  - Insomnia [None]
  - Chest pain [None]
  - Cold sweat [None]
  - Gastrooesophageal reflux disease [None]
  - Alopecia [None]
  - Suicidal ideation [None]
  - Diarrhoea [None]
  - Skin burning sensation [None]
  - Impaired driving ability [None]
  - Night sweats [None]
  - Hyperhidrosis [None]
  - Palpitations [None]
  - Weight decreased [None]
  - Memory impairment [None]
  - Feeling hot [None]
  - Disturbance in attention [None]
  - Vertigo [None]
  - Headache [None]

NARRATIVE: CASE EVENT DATE: 20180401
